FAERS Safety Report 7856737 (Version 3)
Quarter: 2013Q2

REPORT INFORMATION
  Report Type: Spontaneous
  Country: US (occurrence: US)
  Receive Date: 20110315
  Receipt Date: 20130612
  Transmission Date: 20140414
  Serious: Yes (Hospitalization, Other)
  Sender: FDA-Public Use
  Company Number: US-US-EMD SERONO, INC.-7045917

PATIENT
  Age: 38 Year
  Sex: Male
  Weight: 109 kg

DRUGS (3)
  1. REBIF [Suspect]
     Indication: RELAPSING-REMITTING MULTIPLE SCLEROSIS
     Route: 058
     Dates: start: 20091201, end: 201102
  2. REBIF [Suspect]
     Route: 058
     Dates: start: 201102, end: 20120506
  3. EFFEXOR [Concomitant]
     Indication: ANXIETY
     Dates: end: 201102

REACTIONS (10)
  - Dizziness [Recovered/Resolved]
  - Nausea [Recovered/Resolved]
  - Aortic aneurysm [Recovered/Resolved]
  - Aortic valve disease [Recovered/Resolved]
  - Multiple sclerosis relapse [Recovered/Resolved]
  - Myalgia [Not Recovered/Not Resolved]
  - Hepatic enzyme increased [Unknown]
  - Influenza like illness [Unknown]
  - Injection site pain [Unknown]
  - Injection site erythema [Unknown]
